FAERS Safety Report 23084684 (Version 1)
Quarter: 2023Q4

REPORT INFORMATION
  Report Type: Spontaneous
  Country: US (occurrence: None)
  Receive Date: 20231019
  Receipt Date: 20231019
  Transmission Date: 20240110
  Serious: Yes (Hospitalization)
  Sender: FDA-Public Use
  Company Number: None

PATIENT
  Sex: Male

DRUGS (4)
  1. ADYNOVATE [Suspect]
     Active Substance: ANTIHEMOPHILIC FACTOR, HUMAN RECOMBINANT
     Indication: Factor VIII deficiency
     Dosage: OTHER QUANTITY : 4965 UNITS;?
     Route: 042
     Dates: start: 202309
  2. ADYNOVATE [Suspect]
     Active Substance: ANTIHEMOPHILIC FACTOR, HUMAN RECOMBINANT
     Indication: Factor VIII deficiency
     Dosage: OTHER QUANTITY : 2500 UNITS;?OTHER FREQUENCY : EVERY 24 HOURS;?
     Route: 042
     Dates: start: 202309
  3. BLUNT FILTER NEEDLE [Concomitant]
  4. HEMLIBRA SDV [Concomitant]

REACTIONS (1)
  - Mouth haemorrhage [None]
